FAERS Safety Report 4465963-7 (Version None)
Quarter: 2004Q3

REPORT INFORMATION
  Report Type: 
  Country: None (occurrence: None)
  Receive Date: 20040930
  Receipt Date: 20040923
  Transmission Date: 20050211
  Serious: Yes (Death)
  Sender: FDA-Public Use
  Company Number: 2004235041AR

PATIENT
  Age: 88 Year
  Sex: Female

DRUGS (2)
  1. CABERGOLINE [Suspect]
     Indication: PARKINSON'S DISEASE
     Dosage: 2 MG/DAY, ORAL
     Route: 048
     Dates: start: 20030909, end: 20040724
  2. LEVODOPA BENZERAZIDE HYDROCHLORO [Concomitant]

REACTIONS (1)
  - CARDIO-RESPIRATORY ARREST [None]
